FAERS Safety Report 12896821 (Version 1)
Quarter: 2016Q4

REPORT INFORMATION
  Report Type: Report from Study
  Country: CA (occurrence: CA)
  Receive Date: 20161031
  Receipt Date: 20161031
  Transmission Date: 20170207
  Serious: Yes (Other)
  Sender: FDA-Public Use
  Company Number: CA-JNJFOC-20161021142

PATIENT
  Age: 14 Year
  Sex: Female
  Weight: 67 kg

DRUGS (5)
  1. REMICADE [Suspect]
     Active Substance: INFLIXIMAB
     Indication: CROHN^S DISEASE
     Route: 042
     Dates: start: 20160506
  2. REMICADE [Suspect]
     Active Substance: INFLIXIMAB
     Indication: CROHN^S DISEASE
     Dosage: 8TH INFUSION
     Route: 042
     Dates: start: 20161021
  3. LAX-A-DAY [Concomitant]
     Dosage: POST ORAL DAILY
     Route: 048
  4. SALOFALK GR [Concomitant]
     Dosage: ALSO REPORTED AS 11-OCT-2016
     Route: 054
     Dates: start: 20161010
  5. ACCUTANE [Concomitant]
     Active Substance: ISOTRETINOIN
     Dosage: 40 MG PO DAILY
     Route: 048
     Dates: start: 201608

REACTIONS (6)
  - Urticaria [Unknown]
  - Rectal haemorrhage [Recovered/Resolved]
  - Pyrexia [Unknown]
  - Diarrhoea [Unknown]
  - Off label use [Unknown]
  - Product use issue [Unknown]

NARRATIVE: CASE EVENT DATE: 20160506
